FAERS Safety Report 10258413 (Version 1)
Quarter: 2014Q2

REPORT INFORMATION
  Report Type: Spontaneous
  Country: US (occurrence: US)
  Receive Date: 20140625
  Receipt Date: 20140625
  Transmission Date: 20141212
  Serious: Yes (Life-Threatening, Hospitalization)
  Sender: FDA-Public Use
  Company Number: US-HORIZON-VIM-0026-2014

PATIENT
  Age: 40 Year
  Sex: Male

DRUGS (1)
  1. VIMOVO [Suspect]
     Indication: MYALGIA
     Dates: start: 20140305, end: 20140310

REACTIONS (8)
  - Dyspepsia [Unknown]
  - Epigastric discomfort [Unknown]
  - Haematemesis [Unknown]
  - Haematochezia [Unknown]
  - Gastric mucosal lesion [Unknown]
  - Gastric haemorrhage [Unknown]
  - Intentional product misuse [Unknown]
  - Headache [Not Recovered/Not Resolved]
